FAERS Safety Report 5997507-2 (Version None)
Quarter: 2008Q4

REPORT INFORMATION
  Report Type: 
  Country: None (occurrence: None)
  Receive Date: 20081212
  Receipt Date: 20081113
  Transmission Date: 20090506
  Serious: No
  Sender: FDA-Public Use
  Company Number: US-ABBOTT-08P-163-0487804-00

PATIENT
  Sex: Female

DRUGS (1)
  1. HUMIRA [Suspect]
     Indication: CROHN'S DISEASE
     Dates: start: 20080912, end: 20081010

REACTIONS (6)
  - EXFOLIATIVE RASH [None]
  - INFLAMMATION [None]
  - LICHENOID KERATOSIS [None]
  - PAIN OF SKIN [None]
  - PURULENT DISCHARGE [None]
  - RASH ERYTHEMATOUS [None]
